FAERS Safety Report 24381387 (Version 1)
Quarter: 2024Q4

REPORT INFORMATION
  Report Type: Spontaneous
  Country: FR (occurrence: FR)
  Receive Date: 20241001
  Receipt Date: 20241001
  Transmission Date: 20250115
  Serious: Yes (Other)
  Sender: NOVO NORDISK
  Company Number: FR-NOVOPROD-1287762

PATIENT
  Sex: Male

DRUGS (3)
  1. SAXENDA [Suspect]
     Active Substance: LIRAGLUTIDE
     Indication: Product used for unknown indication
     Dosage: UNK,QD
  2. SAXENDA [Suspect]
     Active Substance: LIRAGLUTIDE
     Dosage: UNK(INJECTED THE WHOLE PEN AT ONCE)
  3. SAXENDA [Suspect]
     Active Substance: LIRAGLUTIDE
     Dosage: 3 MG, QD

REACTIONS (3)
  - Gastrointestinal disorder [Recovered/Resolved]
  - Overdose [Recovered/Resolved]
  - Product prescribing error [Recovered/Resolved]
